FAERS Safety Report 16924008 (Version 3)
Quarter: 2020Q1

REPORT INFORMATION
  Report Type: Spontaneous
  Country: IT (occurrence: IT)
  Receive Date: 20191016
  Receipt Date: 20200124
  Transmission Date: 20200409
  Serious: Yes (Hospitalization, Other)
  Sender: FDA-Public Use
  Company Number: NVSC2019IT001207

PATIENT
  Age: 63 Year
  Sex: Female

DRUGS (1)
  1. METFORMIN [Suspect]
     Active Substance: METFORMIN HYDROCHLORIDE
     Indication: TYPE 2 DIABETES MELLITUS
     Dosage: UNK
     Route: 065

REACTIONS (7)
  - Pyrexia [Unknown]
  - Renal impairment [Recovered/Resolved]
  - Asthenia [Unknown]
  - Macrocytosis [Recovered/Resolved]
  - Leukocytosis [Recovered/Resolved]
  - Fatigue [Unknown]
  - Lactic acidosis [Recovered/Resolved]
